FAERS Safety Report 7708033-4 (Version None)
Quarter: 2011Q3

REPORT INFORMATION
  Report Type: 
  Country: None (occurrence: None)
  Receive Date: 20110824
  Receipt Date: 20110811
  Transmission Date: 20111222
  Serious: Yes (Hospitalization)
  Sender: FDA-Public Use
  Company Number: FR-MYLANLABS-2011S1016952

PATIENT
  Age: 21 Year
  Sex: Female

DRUGS (2)
  1. METHADONE HCL [Suspect]
     Dosage: AROUND 40MG PER WEEK
     Route: 048
  2. METHADONE HCL [Suspect]
     Indication: DRUG ABUSE
     Dosage: VOLUNTARILY EMPTIED AND INHALED CONTENTS OF TWO 40MG METHADONE GELATIN CAPSULES
     Route: 055

REACTIONS (5)
  - ACUTE RESPIRATORY DISTRESS SYNDROME [None]
  - STAPHYLOCOCCAL BACTERAEMIA [None]
  - PULMONARY OEDEMA [None]
  - INCORRECT ROUTE OF DRUG ADMINISTRATION [None]
  - DRUG ABUSE [None]
